FAERS Safety Report 16810239 (Version 1)
Quarter: 2019Q3

REPORT INFORMATION
  Report Type: Spontaneous
  Country: SE (occurrence: SE)
  Receive Date: 20190916
  Receipt Date: 20190916
  Transmission Date: 20191005
  Serious: Yes (Other)
  Sender: FDA-Public Use
  Company Number: SE-MYLANLABS-2019M1085463

PATIENT
  Age: 14 Year
  Sex: Female

DRUGS (8)
  1. ELVANSE [Concomitant]
     Active Substance: LISDEXAMFETAMINE DIMESYLATE
     Dosage: 40 MILLIGRAM, QD
  2. CYKLOKAPRON [Concomitant]
     Active Substance: TRANEXAMIC ACID
     Dosage: UNK UNK, PRN
  3. ROSAL 28 [Concomitant]
  4. RISPERIDONE. [Suspect]
     Active Substance: RISPERIDONE
     Indication: IMPULSIVE BEHAVIOUR
     Dosage: UNK
  5. RISPERIDONE. [Suspect]
     Active Substance: RISPERIDONE
     Indication: RESTLESSNESS
     Dosage: 0.25 MILLIGRAM, QD
     Route: 048
     Dates: start: 20190119, end: 20190321
  6. OMECAT [Concomitant]
     Active Substance: OMEPRAZOLE
     Dosage: UNK UNK, PRN
  7. THERALEN [Concomitant]
     Active Substance: TRIMEPRAZINE
     Dosage: UNK UNK, PRN
  8. SERTRALINE [Concomitant]
     Active Substance: SERTRALINE HYDROCHLORIDE
     Dosage: 50 MILLIGRAM, QD

REACTIONS (3)
  - Mastitis [Recovering/Resolving]
  - Hyperprolactinaemia [Recovering/Resolving]
  - Galactorrhoea [Recovering/Resolving]

NARRATIVE: CASE EVENT DATE: 2019
